FAERS Safety Report 7605544-7 (Version None)
Quarter: 2011Q3

REPORT INFORMATION
  Report Type: 
  Country: None (occurrence: None)
  Receive Date: 20110705
  Receipt Date: 20110617
  Transmission Date: 20111222
  Serious: Yes (Hospitalization)
  Sender: FDA-Public Use
  Company Number: 2011MA007719

PATIENT
  Age: 57 Year
  Sex: Female

DRUGS (7)
  1. FEDIPINE [Concomitant]
  2. PREDNISOLONE [Concomitant]
  3. DICLOFENAC SODIUM [Concomitant]
  4. ALPROSTAKIL EMULSION [Concomitant]
  5. BERAPROST SODIUM [Concomitant]
  6. PAREGORIC LIQUID USP (ALPHARMA) (PAREGORIC) [Suspect]
     Indication: PAIN
     Dosage: 25 MG; QD;PO
     Route: 048
  7. CEFAZOLIN [Concomitant]

REACTIONS (5)
  - GALLBLADDER PERFORATION [None]
  - FINGER AMPUTATION [None]
  - TOE AMPUTATION [None]
  - CHOLECYSTITIS ACUTE [None]
  - CHOLECYSTITIS CHRONIC [None]
